FAERS Safety Report 8431633-3 (Version None)
Quarter: 2012Q2

REPORT INFORMATION
  Report Type: 
  Country: None (occurrence: None)
  Receive Date: 20120613
  Receipt Date: 20110725
  Transmission Date: 20120825
  Serious: No
  Sender: FDA-Public Use
  Company Number: US-GLAXOSMITHKLINE-A0938717A

PATIENT

DRUGS (2)
  1. TREXIMET [Suspect]
     Indication: MIGRAINE
     Route: 065
  2. SEROTONIN [Suspect]

REACTIONS (3)
  - ADVERSE EVENT [None]
  - DRUG INEFFECTIVE [None]
  - DRUG INTERACTION [None]
